FAERS Safety Report 9667654 (Version 1)
Quarter: 2013Q4

REPORT INFORMATION
  Report Type: Spontaneous
  Country: US (occurrence: US)
  Receive Date: 20131101
  Receipt Date: 20131101
  Transmission Date: 20140711
  Serious: No
  Sender: FDA-Public Use
  Company Number: US-SAVIENT-2012S1000088

PATIENT
  Age: 65 Year
  Sex: Male
  Weight: 131.54 kg

DRUGS (21)
  1. KRYSTEXXA INJECTION [Suspect]
     Indication: GOUT
     Route: 042
     Dates: start: 20120801
  2. SOLUMEDROL [Concomitant]
     Indication: PREMEDICATION
     Route: 042
     Dates: start: 20120801
  3. BENADRYL /00000402/ [Concomitant]
     Indication: PREMEDICATION
     Route: 042
     Dates: start: 20120801
  4. ALLEGRA [Concomitant]
     Indication: PREMEDICATION
     Dates: start: 20120731
  5. ALLEGRA [Concomitant]
     Indication: PREMEDICATION
     Dates: start: 20120801
  6. ALTACE [Concomitant]
     Indication: PRODUCT USED FOR UNKNOWN INDICATION
  7. DIGOXIN [Concomitant]
     Indication: ATRIAL FIBRILLATION
  8. DIGOXIN [Concomitant]
     Indication: ATRIAL FIBRILLATION
  9. TOPROL [Concomitant]
     Indication: PULMONARY HYPERTENSION
     Dates: start: 2008
  10. TOPROL [Concomitant]
     Indication: PULMONARY HYPERTENSION
     Dates: start: 2008
  11. LESCOL [Concomitant]
     Indication: BLOOD CHOLESTEROL INCREASED
     Dates: start: 2010
  12. TORSEMIDE [Concomitant]
     Indication: DIURETIC THERAPY
  13. NORVASC [Concomitant]
     Indication: PULMONARY HYPERTENSION
  14. GLYBURIDE AND METFORMIN HCL [Concomitant]
     Indication: DIABETES MELLITUS
  15. PRADAXA [Concomitant]
     Indication: ATRIAL FIBRILLATION
     Dates: start: 2011
  16. MICARDIS [Concomitant]
     Indication: PRODUCT USED FOR UNKNOWN INDICATION
     Dates: start: 2010
  17. LOVAZA [Concomitant]
     Indication: BLOOD CHOLESTEROL INCREASED
  18. COLCRYS [Concomitant]
     Indication: GOUT
     Dates: start: 2011
  19. NOVOLOG [Concomitant]
     Indication: DIABETES MELLITUS
     Route: 058
     Dates: start: 2002
  20. TRAMADOLE [Concomitant]
     Indication: PAIN
  21. TYLENOL EXTRA STRENGTH [Concomitant]
     Indication: PAIN

REACTIONS (4)
  - Oedema peripheral [Recovering/Resolving]
  - Musculoskeletal disorder [Recovering/Resolving]
  - Diarrhoea [Not Recovered/Not Resolved]
  - Gout [Unknown]
